FAERS Safety Report 7004338-3 (Version None)
Quarter: 2010Q3

REPORT INFORMATION
  Report Type: 
  Country: None (occurrence: None)
  Receive Date: 20100921
  Receipt Date: 20100913
  Transmission Date: 20110219
  Serious: No
  Sender: FDA-Public Use
  Company Number: US-BIOGENIDEC-2010BI020862

PATIENT
  Age: 49 Year
  Sex: Female

DRUGS (1)
  1. TYSABRI [Suspect]
     Indication: MULTIPLE SCLEROSIS
     Route: 042
     Dates: start: 20100604

REACTIONS (8)
  - COORDINATION ABNORMAL [None]
  - DRUG INEFFECTIVE [None]
  - EAR PAIN [None]
  - ERYTHEMA [None]
  - FLUSHING [None]
  - MUSCLE SPASTICITY [None]
  - PAIN IN EXTREMITY [None]
  - TREMOR [None]
